FAERS Safety Report 9619612 (Version 2)
Quarter: 2013Q4

REPORT INFORMATION
  Report Type: Spontaneous
  Country: GB (occurrence: GB)
  Receive Date: 20131014
  Receipt Date: 20131210
  Transmission Date: 20140711
  Serious: Yes (Hospitalization)
  Sender: FDA-Public Use
  Company Number: GB-BRISTOL-MYERS SQUIBB COMPANY-19520766

PATIENT
  Age: 71 Year
  Sex: Male

DRUGS (8)
  1. ORENCIA [Suspect]
     Indication: RHEUMATOID ARTHRITIS
     Dosage: 4 INFUSION - 25OCT2013
     Route: 042
     Dates: start: 20130813
  2. LEFLUNOMIDE [Concomitant]
  3. METHOTREXATE [Concomitant]
     Dosage: INJ
     Route: 058
  4. RAMIPRIL [Concomitant]
  5. HYDROXYCHLOROQUINE [Concomitant]
  6. FOLIC ACID [Concomitant]
  7. RABEPRAZOLE [Concomitant]
  8. PARACETAMOL [Concomitant]

REACTIONS (1)
  - Myocardial infarction [Recovering/Resolving]
